FAERS Safety Report 4938618-X (Version None)
Quarter: 2006Q1

REPORT INFORMATION
  Report Type: 
  Country: None (occurrence: None)
  Receive Date: 20060306
  Receipt Date: 20060220
  Transmission Date: 20060701
  Serious: Yes (Hospitalization)
  Sender: FDA-Public Use
  Company Number: US200601005031

PATIENT
  Sex: Female

DRUGS (4)
  1. GEMZAR [Suspect]
     Indication: BREAST CANCER METASTATIC
     Dosage: MG/M2, INTRAVENOUS
     Route: 042
     Dates: start: 20051201
  2. ZOMETA [Concomitant]
  3. LITHIUM (LITHIUM) [Concomitant]
  4. ARICEPT [Concomitant]

REACTIONS (5)
  - BLOOD TEST ABNORMAL [None]
  - CHILLS [None]
  - NAUSEA [None]
  - PYREXIA [None]
  - THERAPEUTIC AGENT TOXICITY [None]
